FAERS Safety Report 11219394 (Version 2)
Quarter: 2015Q3

REPORT INFORMATION
  Report Type: Spontaneous
  Country: US (occurrence: US)
  Receive Date: 20150625
  Receipt Date: 20150703
  Transmission Date: 20151125
  Serious: No
  Sender: FDA-Public Use
  Company Number: US-TAKEDA-2015TUS008141

PATIENT
  Age: 42 Year
  Sex: Female
  Weight: 58.5 kg

DRUGS (34)
  1. ENTYVIO [Suspect]
     Active Substance: VEDOLIZUMAB
     Indication: CROHN^S DISEASE
     Dosage: 300 MG, Q8WEEKS
     Route: 042
     Dates: start: 20141029
  2. LOPERAMIDE [Concomitant]
     Active Substance: LOPERAMIDE
     Dosage: 2 MG, 1 TO  TABLET QID AS NEEDED
     Route: 048
  3. OMEPRAZOLE. [Concomitant]
     Active Substance: OMEPRAZOLE
     Dosage: 20 MG, QD AS NEEDED
     Route: 048
  4. VOLTAREN [Concomitant]
     Active Substance: DICLOFENAC SODIUM
     Dosage: 4 G, QID AS NEEDED
     Route: 061
  5. VITAMIN D3 [Concomitant]
     Active Substance: CHOLECALCIFEROL
     Dosage: 1000 IU, QD
     Route: 048
  6. CODEINE SULFATE. [Concomitant]
     Active Substance: CODEINE SULFATE
     Dosage: 30 MG, TID PRN
     Route: 048
  7. LIDOCAINE                          /00033402/ [Concomitant]
     Dosage: 1 TO 2 DF, AS NEEDED EVERY 12HRS
     Route: 061
  8. METRONIDAZOLE. [Concomitant]
     Active Substance: METRONIDAZOLE
     Dosage: UNK, BID AS NEEDED
  9. ZOLPIDEM [Concomitant]
     Active Substance: ZOLPIDEM\ZOLPIDEM TARTRATE
     Dosage: 1 DF, AT BEDTIME AS NEEDED
     Route: 048
  10. BUDESONID [Concomitant]
     Active Substance: BUDESONIDE
     Dosage: 3 MG, QD
     Route: 048
  11. VITAMIN D3 CALCIUM [Concomitant]
     Dosage: 600 MG, BID
     Route: 048
  12. ELMIRON [Concomitant]
     Active Substance: PENTOSAN POLYSULFATE SODIUM
     Dosage: 100 MG, TID
  13. FLORAJEN3 [Concomitant]
     Dosage: 460 MG, QD
     Route: 048
  14. PREDNISONE. [Concomitant]
     Active Substance: PREDNISONE
     Dosage: 1 MG, QD AS DIRECTED
     Route: 048
  15. SERTRALINE [Concomitant]
     Active Substance: SERTRALINE HYDROCHLORIDE
     Dosage: 50 MG, QD
     Route: 048
  16. CYCLOBENZAPRINE [Concomitant]
     Active Substance: CYCLOBENZAPRINE
     Dosage: 5 MG, 1-2 TABLET TID AS NEEDED
     Route: 048
  17. TURMERIC                           /01079602/ [Concomitant]
     Dosage: 1 G, TID AS NEEDED
     Route: 048
  18. EPINEPHRINE. [Concomitant]
     Active Substance: EPINEPHRINE
     Indication: HYPERSENSITIVITY
     Dosage: 1 DF, PRN
     Route: 030
  19. TRAMADOL. [Concomitant]
     Active Substance: TRAMADOL
     Indication: PAIN
     Dosage: 50 MG, 1 TO 2 TABLETS BY MOUTH EVERY SIX HOURS AS NEEDED
     Route: 048
  20. AMITRIPTYLINE [Concomitant]
     Active Substance: AMITRIPTYLINE
     Dosage: 25 MG, 1 TABLET AT BEDTIME
     Route: 048
  21. BLINK                              /00582501/ [Concomitant]
     Dosage: UNK, PRN
     Route: 047
  22. FEXOFENADINE [Concomitant]
     Active Substance: FEXOFENADINE\FEXOFENADINE HYDROCHLORIDE
     Dosage: 180 MG, PRN
     Route: 048
  23. FISH OIL CONCENTRATE [Concomitant]
     Dosage: 1000 MG, BID
     Route: 048
  24. FLECTOR                            /00372302/ [Concomitant]
     Active Substance: DICLOFENAC SODIUM
     Dosage: 1 DF, BID AS NEEDED
  25. FOLIC ACID. [Concomitant]
     Active Substance: FOLIC ACID
     Dosage: 1 MG, QD, 2 TABLETS
     Route: 048
  26. LYRICA [Concomitant]
     Active Substance: PREGABALIN
     Dosage: 50 MG, 2 CAPSULES AT BEDTIME
     Route: 048
  27. MERCAPTOPURINE. [Concomitant]
     Active Substance: MERCAPTOPURINE
     Dosage: 50 MG, QD
     Route: 048
  28. IBUPROFEN. [Concomitant]
     Active Substance: IBUPROFEN
     Dosage: 200 MG, BID PRN
     Route: 048
  29. TIZANIDINE. [Concomitant]
     Active Substance: TIZANIDINE
     Dosage: 4 MG, TID AS NEEDED
     Route: 048
  30. DOXYCYCLINE MONOHYDRATE [Concomitant]
     Active Substance: DOXYCYCLINE
     Dosage: 100 MG, BID
     Route: 048
  31. MULTIVITAMIN WITH MINERALS [Concomitant]
     Active Substance: MINERALS\VITAMINS
     Dosage: 2 DF, BID
     Route: 048
  32. PREDNISONE. [Concomitant]
     Active Substance: PREDNISONE
     Dosage: 10 MG, 3 TABLETS AS DIRECTED
     Route: 048
  33. PREVIDENT 5000 BOOSTER [Concomitant]
     Active Substance: SODIUM FLUORIDE
     Dosage: APPLY 1 TWICE A DAY AS DIRECTED
     Route: 061
  34. SULFASALAZINE. [Concomitant]
     Active Substance: SULFASALAZINE
     Dosage: 500 MG, 3 TABLETS QID
     Route: 048

REACTIONS (4)
  - Tendonitis [Not Recovered/Not Resolved]
  - Umbilical hernia [Not Recovered/Not Resolved]
  - Dysuria [Recovering/Resolving]
  - Arthralgia [Not Recovered/Not Resolved]

NARRATIVE: CASE EVENT DATE: 20150619
